FAERS Safety Report 19425877 (Version 1)
Quarter: 2021Q2

REPORT INFORMATION
  Report Type: Spontaneous
  Country: CN (occurrence: CN)
  Receive Date: 20210616
  Receipt Date: 20210616
  Transmission Date: 20210717
  Serious: Yes (Disabling)
  Sender: FDA-Public Use
  Company Number: NVSC2021CN133802

PATIENT
  Age: 69 Year
  Sex: Female
  Weight: 53 kg

DRUGS (9)
  1. GINKGO BILOBA [Concomitant]
     Active Substance: GINKGO
     Indication: PERIPHERAL VASCULAR DISORDER
  2. GINKGO BILOBA [Concomitant]
     Active Substance: GINKGO
     Indication: CEREBRAL INFARCTION
     Dosage: 5 ML, QD
     Route: 042
     Dates: start: 20200924, end: 20201011
  3. PIRACETAM [Suspect]
     Active Substance: PIRACETAM
     Indication: CEREBRAL INFARCTION
     Dosage: 100 ML, QD
     Route: 042
     Dates: start: 20200925, end: 20201011
  4. ROSUVASTATIN CALCIUM. [Suspect]
     Active Substance: ROSUVASTATIN CALCIUM
     Indication: LIPIDS DECREASED
     Dosage: 10 MG, QOD
     Route: 048
     Dates: start: 20200924, end: 20201025
  5. FELODIPINE. [Concomitant]
     Active Substance: FELODIPINE
     Indication: HYPERTENSION
     Dosage: 5 MG, QD(SUSTAINED RELEASE TABLET)
     Route: 048
     Dates: start: 20200924, end: 20201016
  6. PAN LI SU [Suspect]
     Active Substance: PANTOPRAZOLE SODIUM
     Indication: PROPHYLAXIS
     Dosage: 20 MG, QD(ENTERIC COATED CAPSULE)
     Route: 048
     Dates: start: 20200924, end: 20201025
  7. GINKGO BILOBA [Concomitant]
     Active Substance: GINKGO
     Indication: HAEMOSTASIS
  8. EN BI PU [Suspect]
     Active Substance: DIBUTYL PHTHALATE
     Indication: CEREBRAL INFARCTION
     Dosage: 0.2 G, TID
     Route: 048
     Dates: start: 20200925, end: 20201016
  9. BEI XI [Suspect]
     Active Substance: ACARBOSE
     Indication: TYPE 2 DIABETES MELLITUS
     Dosage: 100 MG, QD
     Route: 048
     Dates: start: 20200924, end: 20201025

REACTIONS (1)
  - Hepatic function abnormal [Unknown]

NARRATIVE: CASE EVENT DATE: 20201004
